FAERS Safety Report 5123705-6 (Version None)
Quarter: 2006Q4

REPORT INFORMATION
  Report Type: 
  Country: None (occurrence: None)
  Receive Date: 20061005
  Receipt Date: 20060913
  Transmission Date: 20070319
  Serious: Yes (Hospitalization)
  Sender: FDA-Public Use
  Company Number: JP200609000002

PATIENT
  Age: 92 Year
  Sex: Female

DRUGS (3)
  1. RALOXIFENE HCL [Suspect]
     Indication: OSTEOPOROSIS POSTMENOPAUSAL
     Dosage: 60 MG, DAILY 1/D, ORAL
     Route: 048
     Dates: start: 20050408, end: 20050603
  2. LANSOPRAZOLE [Concomitant]
  3. KETAS (IBUDILAST) [Concomitant]

REACTIONS (1)
  - UPPER GASTROINTESTINAL HAEMORRHAGE [None]
